FAERS Safety Report 4878408-X (Version None)
Quarter: 2005Q4

REPORT INFORMATION
  Report Type: 
  Country: None (occurrence: None)
  Receive Date: 20051212
  Receipt Date: 20050310
  Transmission Date: 20060501
  Serious: Yes (Other)
  Sender: FDA-Public Use
  Company Number: SUSI-2005-00186

PATIENT
  Age: 9 Year
  Sex: Female
  Weight: 30.8 kg

DRUGS (3)
  1. ADDERALL XR (DEXTROAMPHETAMINE SACCHARATE, AMPHETAMINE SULFATE, AMPHET [Suspect]
     Indication: ATTENTION DEFICIT/HYPERACTIVITY DISORDER
     Dosage: 25  MG, 1X/DAY: QD,ORAL; 10  MG
     Route: 048
     Dates: start: 20040201, end: 20050101
  2. ADDERALL 10 [Suspect]
     Dosage: 20 MG,
     Dates: start: 20040101, end: 20040101
  3. ADDERALL 10 [Suspect]
     Dosage: 20 MG,
     Dates: start: 20040101, end: 20040101

REACTIONS (3)
  - ANXIETY [None]
  - DIZZINESS [None]
  - HEART RATE INCREASED [None]
